FAERS Safety Report 12420454 (Version 2)
Quarter: 2016Q3

REPORT INFORMATION
  Report Type: Spontaneous
  Country: US (occurrence: US)
  Receive Date: 20160531
  Receipt Date: 20160721
  Transmission Date: 20161109
  Serious: No
  Sender: FDA-Public Use
  Company Number: US-009507513-1605USA004385

PATIENT
  Age: 27 Year
  Sex: Female
  Weight: 78.91 kg

DRUGS (1)
  1. NEXPLANON [Suspect]
     Active Substance: ETONOGESTREL
     Indication: CONTRACEPTION
     Dosage: STRENGTH 68 MG,1 ROD EVERY THREE YEARS, LEFT ARM
     Route: 059
     Dates: start: 20160420, end: 20160429

REACTIONS (7)
  - Device deployment issue [Recovered/Resolved]
  - Implant site pain [Recovered/Resolved]
  - Pain in extremity [Recovered/Resolved]
  - Limb mass [Recovered/Resolved]
  - Device expulsion [Recovered/Resolved]
  - Implant site erythema [Recovered/Resolved]
  - Device kink [Recovered/Resolved]

NARRATIVE: CASE EVENT DATE: 201604
